FAERS Safety Report 8445365-9 (Version None)
Quarter: 2012Q2

REPORT INFORMATION
  Report Type: 
  Country: None (occurrence: None)
  Receive Date: 20120323
  Receipt Date: 20111027
  Transmission Date: 20120825
  Serious: Yes (Other)
  Sender: FDA-Public Use
  Company Number: 163-21880-11103462

PATIENT
  Age: 58 Year
  Sex: Female
  Weight: 73.9363 kg

DRUGS (27)
  1. COUMADIN [Concomitant]
  2. FLUTICASONE [Concomitant]
  3. PERCOCET [Concomitant]
  4. AXERT [Concomitant]
  5. FOLBIC (HEPARGRISEVIT FORTE-N TABLET) [Concomitant]
  6. LORATADINE [Concomitant]
  7. OXYGEN [Concomitant]
  8. AMANTADINE HCL [Concomitant]
  9. CALCIUM + D (OS-CAL) [Concomitant]
  10. PROVENTIL [Concomitant]
  11. VISICARE (SOLIFENACIN SUCCINATE) [Concomitant]
  12. MECLIZINE [Concomitant]
  13. AMBIEN [Concomitant]
  14. PROCHLORPERAZINE [Concomitant]
  15. FENTANYL [Concomitant]
  16. VERAMYST (FLUTICASONE FUROATE) [Concomitant]
  17. CEPHALEXIN [Concomitant]
  18. MAGNESIUM [Concomitant]
  19. REVLIMID [Suspect]
     Indication: MULTIPLE MYELOMA
     Dosage: 15 MG, DAILY X 21 DAYS, PO
     Route: 048
     Dates: start: 20110413
  20. SINEMET [Concomitant]
  21. KLONOPIN [Concomitant]
  22. VITAMIN B12 [Concomitant]
  23. MIRALAX [Concomitant]
  24. EFFEXOR [Concomitant]
  25. REQUIP [Concomitant]
  26. NEURONTIN [Concomitant]
  27. PROVIGIL [Concomitant]

REACTIONS (1)
  - PULMONARY THROMBOSIS [None]
